FAERS Safety Report 9610986 (Version 3)
Quarter: 2013Q4

REPORT INFORMATION
  Report Type: Spontaneous
  Country: US (occurrence: US)
  Receive Date: 20131009
  Receipt Date: 20131209
  Transmission Date: 20140711
  Serious: Yes (Other)
  Sender: FDA-Public Use
  Company Number: US-GLAXOSMITHKLINE-A1041366A

PATIENT
  Age: 59 Year
  Sex: Female

DRUGS (3)
  1. FLOLAN [Suspect]
     Indication: PULMONARY ARTERIAL HYPERTENSION
     Dosage: 15NGKM CONTINUOUS
     Route: 042
     Dates: start: 20111014
  2. REVATIO [Concomitant]
  3. COUMADIN [Concomitant]

REACTIONS (2)
  - Endarterectomy [Recovered/Resolved]
  - Upper respiratory tract infection [Recovered/Resolved]
